FAERS Safety Report 8935959 (Version 2)
Quarter: 2013Q1

REPORT INFORMATION
  Report Type: Spontaneous
  Country: US (occurrence: US)
  Receive Date: 20121130
  Receipt Date: 20130228
  Transmission Date: 20140127
  Serious: No
  Sender: FDA-Public Use
  Company Number: US-ABBOTT-12P-163-0996232-00

PATIENT
  Sex: Male
  Weight: 93.07 kg

DRUGS (9)
  1. ANDROGEL [Suspect]
     Indication: BLOOD TESTOSTERONE DECREASED
     Dosage: 2 PUMPS
     Dates: start: 201207, end: 201208
  2. ANDROGEL [Suspect]
     Dosage: 3 PUMPS
     Route: 061
     Dates: start: 201208, end: 201209
  3. ANDROGEL [Suspect]
     Dosage: 1 PUMP
     Route: 061
     Dates: start: 201209, end: 20121007
  4. ANDROGEL [Suspect]
     Dates: start: 201210, end: 201301
  5. ANDROGEL [Suspect]
     Dates: start: 201301
  6. METFORMIN [Concomitant]
     Indication: DIABETES MELLITUS
  7. BENAZAPRIL [Concomitant]
     Indication: HYPERTENSION
  8. AMLODIPINE [Concomitant]
     Indication: PRODUCT USED FOR UNKNOWN INDICATION
  9. CLOMIPHENE CITRATE [Concomitant]
     Indication: BLOOD TESTOSTERONE DECREASED
     Dosage: 1/2 TAB
     Dates: start: 201209, end: 20121015

REACTIONS (8)
  - Blood testosterone abnormal [Not Recovered/Not Resolved]
  - Blood testosterone abnormal [Not Recovered/Not Resolved]
  - Blood testosterone abnormal [Not Recovered/Not Resolved]
  - Fatigue [Not Recovered/Not Resolved]
  - Drug ineffective [Not Recovered/Not Resolved]
  - Blood testosterone abnormal [Not Recovered/Not Resolved]
  - Blood testosterone decreased [Not Recovered/Not Resolved]
  - Erectile dysfunction [Not Recovered/Not Resolved]
